FAERS Safety Report 4933521-3 (Version None)
Quarter: 2006Q1

REPORT INFORMATION
  Report Type: 
  Country: None (occurrence: None)
  Receive Date: 20060111
  Receipt Date: 20050421
  Transmission Date: 20060701
  Serious: Yes (Hospitalization)
  Sender: FDA-Public Use
  Company Number: A001-002-006467

PATIENT
  Age: 92 Year
  Sex: Female

DRUGS (6)
  1. ARICEPT [Suspect]
     Indication: AMNESIA
     Dosage: 5 MG, 1 IN 1 D, ORAL, 10 MG, 1 IN 1 D, ORAL
     Route: 048
     Dates: start: 20050201, end: 20050315
  2. ARICEPT [Suspect]
     Indication: AMNESIA
     Dosage: 5 MG, 1 IN 1 D, ORAL, 10 MG, 1 IN 1 D, ORAL
     Route: 048
     Dates: start: 20050316, end: 20050322
  3. FOSAMAX [Suspect]
     Indication: OSTEOPOROSIS
     Dosage: ORAL
     Route: 048
     Dates: start: 19990101, end: 20050322
  4. LASIX (FOROSEMIDE) [Concomitant]
  5. SYNTHROID [Concomitant]
  6. POTASSIUM [Concomitant]

REACTIONS (5)
  - ANAEMIA [None]
  - DYSPNOEA [None]
  - NAUSEA [None]
  - RASH [None]
  - VOMITING [None]
